FAERS Safety Report 23416210 (Version 4)
Quarter: 2024Q1

REPORT INFORMATION
  Report Type: Spontaneous
  Country: TW (occurrence: TW)
  Receive Date: 20240118
  Receipt Date: 20240126
  Transmission Date: 20240409
  Serious: Yes (Death, Life-Threatening, Other)
  Sender: FDA-Public Use
  Company Number: TW-BAYER-2024A007270

PATIENT
  Age: 67 Year
  Sex: Male

DRUGS (1)
  1. ULTRAVIST [Suspect]
     Active Substance: IOPROMIDE
     Indication: Coronary arterial stent insertion
     Dosage: 40-50ML
     Dates: start: 20240116, end: 20240116

REACTIONS (9)
  - Death [Fatal]
  - Depressed level of consciousness [None]
  - Hyperventilation [None]
  - Pupillary reflex impaired [None]
  - Contrast media allergy [None]
  - Blood pressure systolic decreased [Recovered/Resolved]
  - Supraventricular tachycardia [None]
  - Heart rate increased [None]
  - Respiratory rate increased [None]

NARRATIVE: CASE EVENT DATE: 20240116
